FAERS Safety Report 15157582 (Version 2)
Quarter: 2018Q3

REPORT INFORMATION
  Report Type: Spontaneous
  Country: US (occurrence: US)
  Receive Date: 20180718
  Receipt Date: 20180723
  Transmission Date: 20181010
  Serious: No
  Sender: FDA-Public Use
  Company Number: PHEH2018US028276

PATIENT
  Sex: Female

DRUGS (1)
  1. AMIODARONE HYDROCHLORIDE. [Suspect]
     Active Substance: AMIODARONE HYDROCHLORIDE
     Indication: PRODUCT USED FOR UNKNOWN INDICATION
     Dosage: 200 MG, TID, (3 TIMES A DAY AND THEN 2 TIMES A DAY)
     Route: 065
     Dates: start: 20180306, end: 20180412

REACTIONS (4)
  - Lung disorder [Unknown]
  - Alopecia [Unknown]
  - Visual impairment [Unknown]
  - Thyroid disorder [Unknown]
